FAERS Safety Report 12390368 (Version 1)
Quarter: 2016Q2

REPORT INFORMATION
  Report Type: Spontaneous
  Country: GB (occurrence: GB)
  Receive Date: 20160520
  Receipt Date: 20160520
  Transmission Date: 20160815
  Serious: Yes (Other)
  Sender: FDA-Public Use
  Company Number: GB-LEO PHARMA-241960

PATIENT
  Sex: Male

DRUGS (2)
  1. DAIVOBET [Suspect]
     Active Substance: BETAMETHASONE DIPROPIONATE\CALCIPOTRIENE
     Indication: PSORIASIS
     Route: 061
  2. UNSPECIFIED ANTIBIOTIC [Concomitant]
     Active Substance: UNSPECIFIED INGREDIENT
     Indication: INFECTION

REACTIONS (6)
  - Drug ineffective [Unknown]
  - Medication residue present [Unknown]
  - Product packaging quantity issue [Unknown]
  - Infection [Unknown]
  - Suspected counterfeit product [Unknown]
  - Product physical consistency issue [Unknown]
